FAERS Safety Report 6416058-4 (Version None)
Quarter: 2009Q4

REPORT INFORMATION
  Report Type: 
  Country: None (occurrence: None)
  Receive Date: 20091027
  Receipt Date: 20091014
  Transmission Date: 20100525
  Serious: Yes (Hospitalization, Other)
  Sender: FDA-Public Use
  Company Number: FI-ELI_LILLY_AND_COMPANY-FI200906000310

PATIENT
  Age: 83 Year
  Sex: Female

DRUGS (13)
  1. ZYPREXA [Suspect]
     Dosage: 5 MG, DAILY (1/D)
     Route: 048
     Dates: start: 20090525, end: 20090101
  2. SEPRAM [Concomitant]
     Dosage: 20 MG, DAILY (1/D)
  3. OPAMOX [Concomitant]
     Dosage: 7.5 MG, 3/D
  4. IMOVANE [Concomitant]
     Dosage: UNK, AS NEEDED
  5. TRILEPTAL [Concomitant]
     Indication: NEURALGIA
     Dosage: 300 MG, OTHER
  6. FURESIS [Concomitant]
     Dosage: 20 MG, DAILY (1/D)
  7. PRIMASPAN [Concomitant]
     Dosage: 50 MG, DAILY (1/D)
  8. CARDACE [Concomitant]
     Dosage: 5 MG, DAILY (1/D)
  9. FOTIL [Concomitant]
     Indication: GLAUCOMA
     Dosage: 1 GTT, 2/D
  10. TRUSOPT [Concomitant]
     Indication: GLAUCOMA
     Dosage: 1 GTT, 2/D
  11. KALCIPOS-D [Concomitant]
     Dosage: 1 D/F, 2/D
  12. TELFAST /SCH/ [Concomitant]
     Dosage: UNK, AS NEEDED
  13. ACETAMINOPHEN [Concomitant]
     Dosage: UNK, AS NEEDED

REACTIONS (7)
  - CARDIAC FAILURE [None]
  - CEREBRAL HAEMORRHAGE [None]
  - DIZZINESS [None]
  - ELECTROCARDIOGRAM QT PROLONGED [None]
  - FALL [None]
  - HEMIPLEGIA [None]
  - HYPONATRAEMIA [None]
